FAERS Safety Report 6853642-8 (Version None)
Quarter: 2010Q3

REPORT INFORMATION
  Report Type: 
  Country: None (occurrence: None)
  Receive Date: 20100717
  Receipt Date: 20071217
  Transmission Date: 20110219
  Serious: No
  Sender: FDA-Public Use
  Company Number: US-PFIZER INC-2007104813

PATIENT
  Sex: Female
  Weight: 66.7 kg

DRUGS (5)
  1. CHANTIX [Suspect]
     Indication: SMOKING CESSATION THERAPY
     Dates: start: 20071209
  2. PLAVIX [Concomitant]
     Route: 048
  3. LIPITOR [Concomitant]
     Route: 048
  4. LUNESTA [Concomitant]
     Route: 048
  5. ZESTRIL [Concomitant]
     Route: 048

REACTIONS (3)
  - FATIGUE [None]
  - NAUSEA [None]
  - PAIN [None]
